FAERS Safety Report 15977030 (Version 1)
Quarter: 2019Q1

REPORT INFORMATION
  Report Type: Spontaneous
  Country: US (occurrence: US)
  Receive Date: 20190218
  Receipt Date: 20190218
  Transmission Date: 20190418
  Serious: Yes (Other)
  Sender: FDA-Public Use
  Company Number: US-HERON THERAPEUTICS, INC-HRTX-2018-000506

PATIENT
  Age: 57 Year
  Sex: Female
  Weight: 92.9 kg

DRUGS (6)
  1. PALONOSETRON. [Concomitant]
     Active Substance: PALONOSETRON HYDROCHLORIDE
     Indication: PRODUCT USED FOR UNKNOWN INDICATION
     Dosage: 0.25MG IV PUSH X1 PRIOR TO CHEMO
     Route: 042
     Dates: start: 20180721, end: 20180721
  2. FAMOTIDINE. [Concomitant]
     Active Substance: FAMOTIDINE
     Indication: PRODUCT USED FOR UNKNOWN INDICATION
     Dosage: 40MG IV PUSH X1 PRIOR TO CHEMO
     Route: 042
     Dates: start: 20180721, end: 20180721
  3. CINVANTI [Suspect]
     Active Substance: APREPITANT
     Indication: PROPHYLAXIS OF NAUSEA AND VOMITING
     Dosage: 130 MG, UNK
     Route: 042
     Dates: start: 20180721, end: 20180721
  4. DEXAMETHASONE. [Concomitant]
     Active Substance: DEXAMETHASONE
     Indication: PRODUCT USED FOR UNKNOWN INDICATION
     Dosage: 12MG IVPB X1 PRIOR TO CHEMO
     Route: 042
     Dates: start: 20180721, end: 20180721
  5. DIPHENHYDRAMINE. [Concomitant]
     Active Substance: DIPHENHYDRAMINE
     Indication: PRODUCT USED FOR UNKNOWN INDICATION
     Dosage: DIPHENHYDRAMINE 25MG IV PUSH X1 PRIOR TO CHEMO
     Route: 042
     Dates: start: 20180721, end: 20180721
  6. DEXAMETHASONE. [Concomitant]
     Active Substance: DEXAMETHASONE
     Dosage: DEXAMETHASONE 8MG PO DAILY ON DAYS 2 AND 3 FOLLOWING CHEMO
     Route: 048
     Dates: start: 20180722, end: 20180723

REACTIONS (2)
  - Nausea [Unknown]
  - Vomiting [Unknown]

NARRATIVE: CASE EVENT DATE: 20180724
